FAERS Safety Report 7297388-3 (Version None)
Quarter: 2011Q1

REPORT INFORMATION
  Report Type: 
  Country: None (occurrence: None)
  Receive Date: 20110207
  Receipt Date: 20110126
  Transmission Date: 20110831
  Serious: Yes (Hospitalization)
  Sender: FDA-Public Use
  Company Number: 026282

PATIENT
  Sex: Female
  Weight: 50 kg

DRUGS (5)
  1. METHOTREXATE [Concomitant]
  2. PREDNISOLONE [Concomitant]
  3. CIMZIA [Suspect]
     Indication: RHEUMATOID ARTHRITIS
     Dosage: 400 MG 1X//2 WEEKS, SUBCUTANEOUS; 200 MG 1X/2 WEEKS, SUBCUTANEOUS
     Route: 058
     Dates: start: 20080211
  4. CIMZIA [Suspect]
     Indication: RHEUMATOID ARTHRITIS
     Dosage: 400 MG 1X//2 WEEKS, SUBCUTANEOUS; 200 MG 1X/2 WEEKS, SUBCUTANEOUS
     Route: 058
     Dates: start: 20060605, end: 20080211
  5. ACIDUM FOLICUM [Concomitant]

REACTIONS (4)
  - ANORECTAL DISORDER [None]
  - LEUKOPENIA [None]
  - PURULENT DISCHARGE [None]
  - UPPER RESPIRATORY TRACT INFECTION [None]
